FAERS Safety Report 4786308-9 (Version None)
Quarter: 2005Q3

REPORT INFORMATION
  Report Type: 
  Country: None (occurrence: None)
  Receive Date: 20050927
  Receipt Date: 20050823
  Transmission Date: 20060218
  Serious: No
  Sender: FDA-Public Use
  Company Number: USA0508106103

PATIENT
  Age: 14 Year
  Sex: Male
  Weight: 70 kg

DRUGS (4)
  1. STRATTERA [Suspect]
     Indication: ATTENTION DEFICIT/HYPERACTIVITY DISORDER
     Dosage: 18 MG
     Dates: start: 20030201, end: 20050101
  2. RISPERDAL [Concomitant]
  3. DEPAKOTE [Concomitant]
  4. ADDERALL XR 15 [Concomitant]

REACTIONS (3)
  - AGGRESSION [None]
  - ANGER [None]
  - HOSTILITY [None]
